FAERS Safety Report 16320570 (Version 1)
Quarter: 2019Q2

REPORT INFORMATION
  Report Type: Spontaneous
  Country: US (occurrence: US)
  Receive Date: 20190410
  Receipt Date: 20190410
  Transmission Date: 20190711
  Serious: Yes (Other)
  Sender: FDA-Public Use
  Company Number: None

PATIENT
  Age: 62 Year
  Sex: Female
  Weight: 88.45 kg

DRUGS (2)
  1. DESVENLAFAXINE GENERIC FOR PRISTIQ [Suspect]
     Active Substance: DESVENLAFAXINE
     Indication: BIPOLAR DISORDER
     Dosage: ?          QUANTITY:1 DF DOSAGE FORM;?
     Route: 048
     Dates: start: 20190123, end: 20190327
  2. DESVENLAFAXINE GENERIC FOR PRISTIQ [Suspect]
     Active Substance: DESVENLAFAXINE
     Indication: DEPRESSION
     Dosage: ?          QUANTITY:1 DF DOSAGE FORM;?
     Route: 048
     Dates: start: 20190123, end: 20190327

REACTIONS (14)
  - Hyperhidrosis [None]
  - Vision blurred [None]
  - Dizziness [None]
  - Dyspnoea [None]
  - Nausea [None]
  - Mania [None]
  - Abdominal pain upper [None]
  - Anxiety [None]
  - Burning sensation [None]
  - Pallor [None]
  - Asthenia [None]
  - Headache [None]
  - Vomiting [None]
  - Confusional state [None]

NARRATIVE: CASE EVENT DATE: 20190212
